FAERS Safety Report 14961275 (Version 1)
Quarter: 2018Q2

REPORT INFORMATION
  Report Type: Spontaneous
  Country: BR (occurrence: BR)
  Receive Date: 20180601
  Receipt Date: 20180601
  Transmission Date: 20180711
  Serious: Yes (Other)
  Sender: FDA-Public Use
  Company Number: BR-ROCHE-2131698

PATIENT
  Age: 58 Year
  Sex: Female
  Weight: 72.9 kg

DRUGS (8)
  1. GOSERELINA [Concomitant]
     Active Substance: GOSERELIN
     Route: 058
     Dates: start: 20170914, end: 20170914
  2. ATENOLOL. [Concomitant]
     Active Substance: ATENOLOL
     Indication: HYPERTENSION
     Route: 048
     Dates: start: 20170914, end: 20171213
  3. HERCEPTIN [Suspect]
     Active Substance: TRASTUZUMAB
     Route: 042
     Dates: start: 20170919, end: 20170919
  4. EXEMESTANE. [Concomitant]
     Active Substance: EXEMESTANE
     Indication: BREAST CANCER
     Dosage: AT 6P.M.
     Route: 048
     Dates: start: 20170914, end: 20171213
  5. NPH INSULIN [Concomitant]
     Active Substance: INSULIN BEEF
     Indication: HYPOGLYCAEMIA
     Dosage: 16U UNTIL 8 A.M. AND 10U AT EVENING
     Route: 058
     Dates: start: 20170914, end: 20171014
  6. HERCEPTIN [Suspect]
     Active Substance: TRASTUZUMAB
     Indication: BREAST CANCER
     Route: 042
     Dates: start: 201106, end: 201203
  7. ZOLEDRONIC ACID [Concomitant]
     Active Substance: ZOLEDRONIC ACID
     Indication: BREAST CANCER
     Route: 042
     Dates: start: 20170919, end: 20170919
  8. HYDROCHLOROTHIAZIDE. [Concomitant]
     Active Substance: HYDROCHLOROTHIAZIDE
     Indication: HYPERTENSION
     Dosage: 1 TABLET BY THE MORNING
     Route: 048
     Dates: start: 20170914, end: 20171213

REACTIONS (3)
  - Tremor [Recovered/Resolved]
  - Metastases to bone [Unknown]
  - Chills [Recovered/Resolved]

NARRATIVE: CASE EVENT DATE: 201606
